FAERS Safety Report 21967765 (Version 2)
Quarter: 2023Q1

REPORT INFORMATION
  Report Type: Spontaneous
  Country: JP (occurrence: JP)
  Receive Date: 20230208
  Receipt Date: 20230314
  Transmission Date: 20230418
  Serious: Yes (Hospitalization)
  Sender: FDA-Public Use
  Company Number: JP-MTPC-MTPC2023-0003275AA

PATIENT
  Age: 57 Year
  Sex: Male

DRUGS (1)
  1. FINGOLIMOD [Suspect]
     Active Substance: FINGOLIMOD
     Indication: Multiple sclerosis
     Dosage: 0.5 MG
     Route: 065

REACTIONS (3)
  - Demyelination [Recovering/Resolving]
  - Tumefactive multiple sclerosis [Unknown]
  - Hydrocephalus [Recovered/Resolved with Sequelae]
